FAERS Safety Report 4892991-X (Version None)
Quarter: 2005Q4

REPORT INFORMATION
  Report Type: 
  Country: None (occurrence: None)
  Receive Date: 20051223
  Receipt Date: 20050624
  Transmission Date: 20060501
  Serious: Yes (Other)
  Sender: FDA-Public Use
  Company Number: PHEH2005US05143

PATIENT
  Age: 43 Year
  Sex: Male

DRUGS (6)
  1. CLOZARIL [Suspect]
     Dosage: 800MG, QD, ORAL
     Route: 048
  2. TRILEPTAL [Suspect]
     Dosage: 600 MG, BID, ORAL
     Route: 048
  3. GABITRIL [Suspect]
     Dosage: 2 MG, QHS FOR 7 DAYS, ORAL; 4 MG, QHS, ORAL
     Route: 048
  4. LITHIUM CARBONATE [Suspect]
     Dosage: 600 MG, BID, ORAL
     Route: 048
  5. KLONOPIN [Suspect]
     Dosage: 0.5 MG, TID, ORAL
     Route: 048
  6. SEROQUEL [Suspect]
     Dosage: 600 MG, TID, ORAL

REACTIONS (7)
  - APHASIA [None]
  - CONFUSIONAL STATE [None]
  - COORDINATION ABNORMAL [None]
  - DELUSION [None]
  - DISORIENTATION [None]
  - DRUG INTERACTION [None]
  - SEDATION [None]
